FAERS Safety Report 8169667-9 (Version None)
Quarter: 2012Q1

REPORT INFORMATION
  Report Type: 
  Country: None (occurrence: None)
  Receive Date: 20120228
  Receipt Date: 20120223
  Transmission Date: 20120608
  Serious: Yes (Other)
  Sender: FDA-Public Use
  Company Number: US-PFIZER INC-2011304998

PATIENT
  Sex: Female
  Weight: 64 kg

DRUGS (3)
  1. MEDROXYPROGESTERONE [Suspect]
     Dosage: 150 MG, EVERY 3 MONTHS
     Route: 030
  2. MULTI-VITAMINS [Concomitant]
     Dosage: UNK
  3. MEDROXYPROGESTERONE [Suspect]
     Indication: CONTRACEPTION
     Dosage: 150 MG, EVERY 3 MONTHS
     Route: 030
     Dates: start: 20110819

REACTIONS (2)
  - DRUG INEFFECTIVE [None]
  - UNINTENDED PREGNANCY [None]
